FAERS Safety Report 19523335 (Version 1)
Quarter: 2021Q3

REPORT INFORMATION
  Report Type: Spontaneous
  Country: US (occurrence: US)
  Receive Date: 20210712
  Receipt Date: 20210712
  Transmission Date: 20211014
  Serious: No
  Sender: FDA-Public Use
  Company Number: US-LUNDBECK-DKLU3034673

PATIENT

DRUGS (1)
  1. VYEPTI [Suspect]
     Active Substance: EPTINEZUMAB-JJMR
     Indication: PRODUCT USED FOR UNKNOWN INDICATION
     Route: 041

REACTIONS (3)
  - Throat irritation [Recovered/Resolved]
  - Drug ineffective [Unknown]
  - Oropharyngeal pain [Recovered/Resolved]
